FAERS Safety Report 5597600-2 (Version None)
Quarter: 2008Q1

REPORT INFORMATION
  Report Type: 
  Country: None (occurrence: None)
  Receive Date: 20080121
  Receipt Date: 20080110
  Transmission Date: 20080703
  Serious: Yes (Hospitalization)
  Sender: FDA-Public Use
  Company Number: B0503879A

PATIENT
  Age: 36 Year
  Sex: Female

DRUGS (4)
  1. AUGMENTIN '125' [Suspect]
     Route: 048
     Dates: start: 20071115, end: 20071120
  2. TAVANIC [Suspect]
     Dosage: 2UNIT PER DAY
     Route: 048
     Dates: start: 20071115, end: 20071120
  3. LEVONORGESTREL AND ETHINYL ESTRADIOL [Suspect]
     Indication: DRUG USE FOR UNKNOWN INDICATION
     Dosage: 2TAB PER DAY
     Route: 048
     Dates: start: 20070901, end: 20071122
  4. ORGAMETRIL [Suspect]
     Indication: DRUG USE FOR UNKNOWN INDICATION
     Route: 048
     Dates: start: 20070901, end: 20071122

REACTIONS (11)
  - ALANINE AMINOTRANSFERASE INCREASED [None]
  - ASPARTATE AMINOTRANSFERASE INCREASED [None]
  - BLOOD BILIRUBIN INCREASED [None]
  - CHOLANGITIS [None]
  - CYTOLYTIC HEPATITIS [None]
  - GAMMA-GLUTAMYLTRANSFERASE INCREASED [None]
  - GRANULOMATOUS LIVER DISEASE [None]
  - HEPATITIS [None]
  - HEPATOMEGALY [None]
  - PULMONARY TUBERCULOSIS [None]
  - SPUTUM TEST [None]
